FAERS Safety Report 6546754-X (Version None)
Quarter: 2010Q1

REPORT INFORMATION
  Report Type: 
  Country: None (occurrence: None)
  Receive Date: 20100122
  Receipt Date: 20100113
  Transmission Date: 20100710
  Serious: Yes (Other)
  Sender: FDA-Public Use
  Company Number: PL-ROCHE-679659

PATIENT
  Sex: Female

DRUGS (1)
  1. XELODA [Suspect]
     Indication: BREAST CANCER
     Route: 065
     Dates: start: 20090301, end: 20091001

REACTIONS (13)
  - ARTHRALGIA [None]
  - ERYTHEMA [None]
  - HYPERAESTHESIA [None]
  - HYPOAESTHESIA [None]
  - HYPOKINESIA [None]
  - METASTASES TO LUNG [None]
  - NAIL DISORDER [None]
  - PAIN [None]
  - PAIN IN EXTREMITY [None]
  - PARESIS [None]
  - SENSORY DISTURBANCE [None]
  - SKIN DISORDER [None]
  - SKIN EXFOLIATION [None]
